FAERS Safety Report 5087397-7 (Version None)
Quarter: 2006Q3

REPORT INFORMATION
  Report Type: 
  Country: None (occurrence: None)
  Receive Date: 20060727
  Receipt Date: 20060516
  Transmission Date: 20061208
  Serious: Yes (Other)
  Sender: FDA-Public Use
  Company Number: 2006066150

PATIENT
  Age: 67 Year
  Sex: Female
  Weight: 83.9154 kg

DRUGS (9)
  1. LYRICA [Suspect]
     Indication: NEUROPATHY PERIPHERAL
     Dosage: 100 MG (50 MG, BID)
     Dates: start: 20060101
  2. COZAAR [Concomitant]
  3. NORVASC [Concomitant]
  4. HYDROCHLOROTHIAZIDE [Concomitant]
  5. PROZAC [Concomitant]
  6. TRAZODONE HCL [Concomitant]
  7. NABUMETONE [Concomitant]
  8. PRILOSEC [Concomitant]
  9. VITAMINS (VITAMINS) [Concomitant]

REACTIONS (2)
  - COGNITIVE DISORDER [None]
  - EXPRESSIVE LANGUAGE DISORDER [None]
